FAERS Safety Report 20045662 (Version 1)
Quarter: 2021Q4

REPORT INFORMATION
  Report Type: Spontaneous
  Country: US (occurrence: US)
  Receive Date: 20211108
  Receipt Date: 20211108
  Transmission Date: 20220304
  Serious: Yes (Hospitalization, Other)
  Sender: FDA-Public Use
  Company Number: US-Millicent Holdings Ltd.-MILL20210918

PATIENT
  Age: 64 Year
  Sex: Female

DRUGS (1)
  1. INTRAROSA [Suspect]
     Active Substance: PRASTERONE
     Indication: Product used for unknown indication
     Dosage: 6.5 MG
     Route: 067
     Dates: end: 2018

REACTIONS (2)
  - Transient ischaemic attack [Recovered/Resolved]
  - Product dose omission issue [Unknown]
